FAERS Safety Report 7505387-9 (Version None)
Quarter: 2011Q2

REPORT INFORMATION
  Report Type: 
  Country: None (occurrence: None)
  Receive Date: 20110526
  Receipt Date: 20091119
  Transmission Date: 20111010
  Serious: Yes (Death, Hospitalization, Other)
  Sender: FDA-Public Use
  Company Number: US-BAYER-200940776NA

PATIENT
  Age: 69 Year
  Sex: Male
  Weight: 101.13 kg

DRUGS (38)
  1. LOVENOX [Concomitant]
     Dosage: 100 MG, BID
     Route: 058
     Dates: start: 20050318
  2. METOPROLOL TARTRATE [Concomitant]
     Indication: ANXIETY
     Dosage: 50 MG, QD
     Route: 048
     Dates: start: 20050317
  3. NITROGLYCERIN [Concomitant]
     Indication: CHEST PAIN
     Dosage: 50MG/250ML DEXTROSE 5%
     Route: 042
     Dates: start: 20050317, end: 20050322
  4. ANCEF [Concomitant]
     Dosage: 1 G, TID
     Route: 042
     Dates: start: 20050322
  5. ACETYLSALICYLIC ACID SRT [Concomitant]
     Dosage: 325 MG, LONG TERM
     Route: 048
  6. HEPARIN [Concomitant]
     Dosage: 10000 U, UNK
     Route: 042
     Dates: start: 20050322, end: 20050322
  7. LIDOCAINE [Concomitant]
     Dosage: LOCAL
     Dates: start: 20050322, end: 20050322
  8. POTASSIUM CHLORIDE [Concomitant]
     Dosage: UNK
     Route: 042
     Dates: start: 20050322, end: 20050322
  9. SURGICEL ABSORBABLE HEMOSTATIC CONE [Concomitant]
     Dosage: UNK
     Route: 061
     Dates: start: 20050322, end: 20050322
  10. TRASYLOL [Suspect]
     Indication: AORTIC VALVE REPLACEMENT
     Dosage: UNSPECIFIED AMOUNT DRIP
     Route: 042
     Dates: start: 20050322
  11. HEPARIN [Concomitant]
     Dosage: 10000 U, PUMP PRIME
     Route: 042
     Dates: start: 20050322, end: 20050322
  12. SUFENTANIL CITRATE [Concomitant]
     Dosage: UNK
     Route: 042
     Dates: start: 20050322, end: 20050322
  13. NOREPINEPHRINE BITARTRATE [Concomitant]
     Dosage: PUMP PRIME
     Dates: start: 20050322, end: 20050322
  14. NITROGLYCERIN [Concomitant]
     Dosage: 1 INCH EVERY 6 HOURS
     Route: 061
     Dates: start: 20050316
  15. ALBUMIN (HUMAN) [Concomitant]
     Dosage: 25 G, PUMP PRIME
     Route: 042
     Dates: start: 20050322, end: 20050322
  16. CALCIUM CHLORIDE [Concomitant]
     Dosage: 1 G, UNK
     Route: 042
     Dates: start: 20050322, end: 20050322
  17. LIDOCAINE [Concomitant]
     Dosage: 100 MG, UNK
     Route: 042
     Dates: start: 20050322, end: 20050322
  18. MAGNESIUM SULFATE [Concomitant]
     Dosage: 2 G, UNK
     Route: 042
     Dates: start: 20050322, end: 20050322
  19. HETASTARCH 6% IN 0.9% SODIUM CHLORIDE IN PLASTIC CONTAINER [Concomitant]
     Dosage: PUMP PRIME
     Route: 042
     Dates: start: 20050322, end: 20050322
  20. TRASYLOL [Suspect]
     Indication: CORONARY ARTERY BYPASS
     Dosage: 1 ML, TEST DOSE
     Route: 042
     Dates: start: 20050322
  21. ANCEF [Concomitant]
     Dosage: UNK
     Route: 042
     Dates: start: 20050322, end: 20050322
  22. ATENOLOL [Concomitant]
     Dosage: 12.5 MG, UNK
     Route: 048
     Dates: start: 20050316
  23. MUCOMYST [Concomitant]
     Indication: PREOPERATIVE CARE
     Dosage: 600 MG, BID
     Route: 048
     Dates: start: 20050316, end: 20050317
  24. ZIAC [Concomitant]
     Indication: HYPERTENSION
     Dosage: 2.5/6.25 MG
     Route: 048
     Dates: start: 19950101, end: 20050301
  25. LABETALOL [Concomitant]
     Dosage: UNK
     Route: 042
     Dates: start: 20050322, end: 20050322
  26. HEPARIN [Concomitant]
     Dosage: 5000 U, TID
     Route: 058
     Dates: start: 20050316
  27. HEPARIN [Concomitant]
     Dosage: 25000 U, UNK
     Route: 042
     Dates: start: 20050317
  28. IBUPROFEN [Concomitant]
     Indication: ARTHRALGIA
     Dosage: LONG TERM, PRN
     Route: 048
  29. FAMOTIDINE [Concomitant]
     Dosage: UNK
     Route: 042
     Dates: start: 20050322, end: 20050322
  30. SODIUM NITROPRUSSIDE [Concomitant]
     Dosage: PUMP PRIME
     Dates: start: 20050322, end: 20050322
  31. PHENYLEPHRINE HCL [Concomitant]
     Dosage: UNK
     Route: 042
     Dates: start: 20050322, end: 20050322
  32. PROTAMINE SULFATE [Concomitant]
     Dosage: UNK
     Route: 042
     Dates: start: 20050322, end: 20050322
  33. TRASYLOL [Suspect]
     Indication: AORTIC ANEURYSM REPAIR
  34. TRASYLOL [Suspect]
     Indication: AORTIC SURGERY
  35. CEFAZOLIN [Concomitant]
     Dosage: UNK
     Route: 042
     Dates: start: 20050322, end: 20050322
  36. MANNITOL [Concomitant]
     Dosage: 25 G, PUMP PRIME
     Dates: start: 20050322, end: 20050322
  37. PAVULON [Concomitant]
     Dosage: UNK
     Route: 042
     Dates: start: 20050322, end: 20050322
  38. SEVOFLURANE [Concomitant]
     Dosage: INHALANT
     Dates: start: 20050322, end: 20050322

REACTIONS (13)
  - ANXIETY [None]
  - FEAR [None]
  - ANHEDONIA [None]
  - DEATH [None]
  - RENAL FAILURE [None]
  - RENAL IMPAIRMENT [None]
  - EMOTIONAL DISTRESS [None]
  - INJURY [None]
  - STRESS [None]
  - UNEVALUABLE EVENT [None]
  - PAIN [None]
  - MULTI-ORGAN FAILURE [None]
  - RENAL INJURY [None]
